FAERS Safety Report 5963651-9 (Version None)
Quarter: 2008Q4

REPORT INFORMATION
  Report Type: 
  Country: None (occurrence: None)
  Receive Date: 20081124
  Receipt Date: 20081119
  Transmission Date: 20090506
  Serious: Yes (Other)
  Sender: FDA-Public Use
  Company Number: CA-ABBOTT-08P-028-0488824-00

PATIENT
  Sex: Female
  Weight: 88.53 kg

DRUGS (1)
  1. HUMIRA [Suspect]
     Indication: RHEUMATOID ARTHRITIS
     Route: 058
     Dates: start: 20080404

REACTIONS (2)
  - ASTHENIA [None]
  - LOSS OF CONSCIOUSNESS [None]
